FAERS Safety Report 19151134 (Version 1)
Quarter: 2021Q2

REPORT INFORMATION
  Report Type: Report from Study
  Country: FR (occurrence: FR)
  Receive Date: 20210419
  Receipt Date: 20210419
  Transmission Date: 20210717
  Serious: Yes (Hospitalization, Disabling, Other)
  Sender: FDA-Public Use
  Company Number: FR-BEH-2021130807

PATIENT
  Age: 4 Year
  Weight: 23 kg

DRUGS (4)
  1. AMOXICILLIN+CLAVULANIC ACID [Concomitant]
     Active Substance: AMOXICILLIN\CLAVULANIC ACID
     Dosage: 150 MILLIGRAM/KILOGRAM, QD
     Route: 042
     Dates: start: 20160621, end: 20160629
  2. PRIVIGEN [Suspect]
     Active Substance: HUMAN IMMUNOGLOBULIN G
     Indication: TOXIC SHOCK SYNDROME STAPHYLOCOCCAL
     Dosage: 2000 MILLIGRAM/KILOGRAM, TOT
     Route: 040
     Dates: start: 20160620, end: 20160620
  3. PRIVIGEN [Suspect]
     Active Substance: HUMAN IMMUNOGLOBULIN G
     Indication: TOXIC SHOCK SYNDROME STREPTOCOCCAL
  4. NOREPINEPHRINE. [Concomitant]
     Active Substance: NOREPINEPHRINE
     Dosage: 1 MILLIGRAM/KILOGRAM, QD
     Route: 042
     Dates: start: 20160620, end: 20160623

REACTIONS (4)
  - Seizure [Recovered/Resolved]
  - Off label use [Unknown]
  - No adverse event [Unknown]
  - Hypoxic-ischaemic encephalopathy [Recovered/Resolved with Sequelae]

NARRATIVE: CASE EVENT DATE: 20160621
